FAERS Safety Report 6975604-2 (Version None)
Quarter: 2010Q3

REPORT INFORMATION
  Report Type: 
  Country: None (occurrence: None)
  Receive Date: 20100910
  Receipt Date: 20090320
  Transmission Date: 20110219
  Serious: No
  Sender: FDA-Public Use
  Company Number: US-WYE-H08662809

PATIENT
  Sex: Female

DRUGS (7)
  1. PRISTIQ [Suspect]
     Indication: DEPRESSION
     Route: 048
     Dates: start: 20090306
  2. HYDROCODONE [Concomitant]
  3. ACETYLSALICYLIC ACID [Concomitant]
  4. ALPRAZOLAM [Concomitant]
  5. PROMETHAZINE [Concomitant]
  6. NEXIUM [Concomitant]
  7. HYDROCHLOROTHIAZIDE [Concomitant]

REACTIONS (2)
  - CHEST DISCOMFORT [None]
  - EXTRASYSTOLES [None]
